FAERS Safety Report 25660191 (Version 1)
Quarter: 2025Q3

REPORT INFORMATION
  Report Type: Spontaneous
  Country: US (occurrence: None)
  Receive Date: 20250807
  Receipt Date: 20250807
  Transmission Date: 20251021
  Serious: Yes (Other)
  Sender: FDA-CTU
  Company Number: None

PATIENT
  Age: 58 Year
  Sex: Female
  Weight: 67.5 kg

DRUGS (4)
  1. OZEMPIC [Suspect]
     Active Substance: SEMAGLUTIDE
     Indication: Diabetes mellitus
     Dates: start: 20250720, end: 20250720
  2. TRESIBA [Concomitant]
     Active Substance: INSULIN DEGLUDEC
  3. AMARYL [Concomitant]
     Active Substance: GLIMEPIRIDE
  4. MULTIVITAMIN WOMENS 50+ [Concomitant]

REACTIONS (12)
  - Malaise [None]
  - Near death experience [None]
  - Lipase increased [None]
  - Biliary dilatation [None]
  - Abdominal pain upper [None]
  - Pyrexia [None]
  - Asthenia [None]
  - Dizziness [None]
  - Nausea [None]
  - Pain [None]
  - C-reactive protein increased [None]
  - Platelet count decreased [None]

NARRATIVE: CASE EVENT DATE: 20250720
